FAERS Safety Report 9256910 (Version 1)
Quarter: 2013Q2

REPORT INFORMATION
  Report Type: Spontaneous
  Country: US (occurrence: None)
  Receive Date: 20130423
  Receipt Date: 20130423
  Transmission Date: 20140414
  Serious: Yes (Hospitalization)
  Sender: FDA-Public Use
  Company Number: CC400176587

PATIENT
  Age: 61 Year
  Sex: Female

DRUGS (6)
  1. CEFEPIME [Suspect]
     Indication: ARTHRITIS BACTERIAL
  2. LEVOFLOXACIN [Suspect]
  3. METOPROLOL [Concomitant]
  4. TACROLIMUS [Concomitant]
  5. COUMADIN [Concomitant]
  6. DOCUSATE SODIUM [Concomitant]

REACTIONS (8)
  - Skin exfoliation [None]
  - Pruritus [None]
  - Erythema [None]
  - Dermatitis [None]
  - Acanthosis [None]
  - Epidermal necrosis [None]
  - Rash macular [None]
  - Perivascular dermatitis [None]
